FAERS Safety Report 25774712 (Version 1)
Quarter: 2025Q3

REPORT INFORMATION
  Report Type: Spontaneous
  Country: EU (occurrence: EU)
  Receive Date: 20250908
  Receipt Date: 20250908
  Transmission Date: 20251020
  Serious: Yes (Death)
  Sender: REGENERON
  Company Number: None

PATIENT
  Age: 82 Year
  Sex: Male

DRUGS (1)
  1. CEMIPLIMAB [Suspect]
     Active Substance: CEMIPLIMAB
     Indication: Skin squamous cell carcinoma metastatic
     Route: 042
     Dates: start: 20250515, end: 20250605

REACTIONS (2)
  - Necrotising myositis [Fatal]
  - Atrioventricular block complete [Fatal]

NARRATIVE: CASE EVENT DATE: 20250608
